FAERS Safety Report 6613794-1 (Version None)
Quarter: 2010Q1

REPORT INFORMATION
  Report Type: 
  Country: None (occurrence: None)
  Receive Date: 20100304
  Receipt Date: 20100222
  Transmission Date: 20100710
  Serious: Yes (Other)
  Sender: FDA-Public Use
  Company Number: B0636929A

PATIENT
  Age: 40 Year
  Sex: Male

DRUGS (1)
  1. KETOCONAZOLE [Suspect]
     Indication: ANTIFUNGAL PROPHYLAXIS
     Dosage: 400MG PER DAY
     Route: 048

REACTIONS (4)
  - ANGIOEDEMA [None]
  - DRUG HYPERSENSITIVITY [None]
  - RASH [None]
  - URTICARIA [None]
